FAERS Safety Report 6690222-1 (Version None)
Quarter: 2010Q2

REPORT INFORMATION
  Report Type: 
  Country: None (occurrence: None)
  Receive Date: 20100421
  Receipt Date: 20100415
  Transmission Date: 20101027
  Serious: Yes (Death, Hospitalization)
  Sender: FDA-Public Use
  Company Number: JP-ROCHE-635758

PATIENT
  Sex: Female
  Weight: 49 kg

DRUGS (14)
  1. TOCILIZUMAB [Suspect]
     Indication: RHEUMATOID ARTHRITIS
     Route: 041
     Dates: start: 20081201, end: 20081201
  2. TOCILIZUMAB [Suspect]
     Route: 041
     Dates: start: 20081226, end: 20081226
  3. TOCILIZUMAB [Suspect]
     Route: 041
     Dates: start: 20090122, end: 20090122
  4. TOCILIZUMAB [Suspect]
     Route: 041
     Dates: start: 20090312, end: 20090312
  5. TOCILIZUMAB [Suspect]
     Route: 041
     Dates: start: 20090409, end: 20090409
  6. TOCILIZUMAB [Suspect]
     Dosage: ACTION TAKEN : DISCONTINUED.
     Route: 041
     Dates: start: 20090507, end: 20090507
  7. PROGRAF [Concomitant]
     Route: 048
     Dates: end: 20090101
  8. PREDONINE [Concomitant]
     Route: 048
     Dates: end: 20090101
  9. BENET [Concomitant]
     Route: 048
     Dates: end: 20090101
  10. CANDESARTAN CILEXETIL [Concomitant]
     Route: 048
     Dates: end: 20090101
  11. AMLODIN [Concomitant]
     Route: 048
     Dates: end: 20090101
  12. MEVALOTIN [Concomitant]
     Dosage: FORM: PERORAL AGENT
     Route: 048
     Dates: end: 20090101
  13. GAMOFA [Concomitant]
     Dosage: FORM: PERORAL AGENT
     Route: 048
     Dates: end: 20090101
  14. LOBU [Concomitant]
     Route: 048
     Dates: end: 20090101

REACTIONS (2)
  - ARTHRITIS BACTERIAL [None]
  - DISSEMINATED INTRAVASCULAR COAGULATION [None]
